FAERS Safety Report 16248656 (Version 1)
Quarter: 2019Q2

REPORT INFORMATION
  Report Type: Spontaneous
  Country: US (occurrence: US)
  Receive Date: 20190429
  Receipt Date: 20190429
  Transmission Date: 20190711
  Serious: Yes (Other)
  Sender: FDA-Public Use
  Company Number: US-JNJFOC-20190440686

PATIENT

DRUGS (4)
  1. IBUPROFEN. [Suspect]
     Active Substance: IBUPROFEN
     Indication: CONGENITAL HEART VALVE DISORDER
     Route: 064
  2. INDOMETHACIN. [Suspect]
     Active Substance: INDOMETHACIN
     Indication: CONGENITAL HEART VALVE DISORDER
     Route: 064
  3. IBUPROFEN. [Suspect]
     Active Substance: IBUPROFEN
     Indication: CONGENITAL TRICUSPID VALVE STENOSIS
     Route: 064
  4. INDOMETHACIN. [Suspect]
     Active Substance: INDOMETHACIN
     Indication: CONGENITAL TRICUSPID VALVE STENOSIS
     Route: 064

REACTIONS (5)
  - Product use in unapproved indication [Unknown]
  - Therapeutic response unexpected [Unknown]
  - Foetal exposure during pregnancy [Unknown]
  - Off label use [Unknown]
  - Premature baby [Unknown]
